FAERS Safety Report 7784963-2 (Version None)
Quarter: 2011Q3

REPORT INFORMATION
  Report Type: 
  Country: None (occurrence: None)
  Receive Date: 20110928
  Receipt Date: 20110916
  Transmission Date: 20111222
  Serious: Yes (Death, Life-Threatening)
  Sender: FDA-Public Use
  Company Number: BR-GILEAD-2011-0042774

PATIENT

DRUGS (7)
  1. EMTRICITABINE/TENOFOVIR DISOPROXIL FUMARATE [Suspect]
     Indication: HIV INFECTION
     Dates: start: 20110502, end: 20110808
  2. AMIKACIN [Concomitant]
     Indication: GASTROINTESTINAL DISORDER
     Dates: start: 20110630, end: 20110808
  3. RALTEGRAVIR [Concomitant]
     Indication: HIV INFECTION
     Dates: start: 20110516, end: 20110808
  4. LEVOFLOXACIN [Concomitant]
     Indication: GASTROINTESTINAL DISORDER
     Dates: start: 20110608, end: 20110808
  5. LAMIVUDINE [Concomitant]
     Indication: HIV INFECTION
     Dates: start: 20110502, end: 20110808
  6. TERIZIDONE [Concomitant]
     Indication: GASTROINTESTINAL DISORDER
     Dates: start: 20110630, end: 20110808
  7. PYRAZINAMIDE [Concomitant]
     Indication: TUBERCULOSIS
     Dates: start: 20110611, end: 20110808

REACTIONS (1)
  - MENINGITIS TUBERCULOUS [None]
